FAERS Safety Report 23512059 (Version 2)
Quarter: 2025Q4

REPORT INFORMATION
  Report Type: Spontaneous
  Country: US (occurrence: US)
  Receive Date: 20240212
  Receipt Date: 20251207
  Transmission Date: 20260118
  Serious: No
  Sender: SANOFI AVENTIS
  Company Number: US-SA-SAC20240207000148

PATIENT
  Age: 53 Year
  Sex: Female

DRUGS (56)
  1. DUPIXENT [Suspect]
     Active Substance: DUPILUMAB
     Indication: Dermatitis atopic
     Dosage: 600 MG 1X
     Route: 058
  2. DUPIXENT [Suspect]
     Active Substance: DUPILUMAB
     Indication: Systemic lupus erythematosus
     Dosage: 300 MG, QOW
     Route: 058
  3. CELLCEPT [Concomitant]
     Active Substance: MYCOPHENOLATE MOFETIL
  4. FOSAMAX [Concomitant]
     Active Substance: ALENDRONATE SODIUM
  5. IRON [Concomitant]
     Active Substance: IRON
  6. KETOPROFEN [Concomitant]
     Active Substance: KETOPROFEN
  7. LEVALBUTEROL [Concomitant]
     Active Substance: LEVALBUTEROL
     Dosage: 1.25MG/3
  8. LIDOCAINE [Concomitant]
     Active Substance: LIDOCAINE
  9. NOVOLIN 70/30 [Concomitant]
     Active Substance: INSULIN HUMAN
  10. NYSTATIN [Concomitant]
     Active Substance: NYSTATIN
  11. ONDANSETRON [Concomitant]
     Active Substance: ONDANSETRON
  12. SYMBICORT [Concomitant]
     Active Substance: BUDESONIDE\FORMOTEROL FUMARATE DIHYDRATE
  13. TRESIBA [Concomitant]
     Active Substance: INSULIN DEGLUDEC
  14. ADVAIR HFA [Concomitant]
     Active Substance: FLUTICASONE PROPIONATE\SALMETEROL XINAFOATE
  15. ATORVASTATIN [Concomitant]
     Active Substance: ATORVASTATIN
  16. BUPROPION HYDROCHLORIDE [Concomitant]
     Active Substance: BUPROPION HYDROCHLORIDE
  17. VITAMIN B12 [Concomitant]
     Active Substance: CYANOCOBALAMIN
  18. FOLIC ACID [Concomitant]
     Active Substance: FOLIC ACID
  19. HYDROXYZINE [Concomitant]
     Active Substance: HYDROXYZINE HYDROCHLORIDE
  20. JARDIANCE [Concomitant]
     Active Substance: EMPAGLIFLOZIN
  21. OPZELURA [Concomitant]
     Active Substance: RUXOLITINIB PHOSPHATE
  22. PIMECROLIMUS [Concomitant]
     Active Substance: PIMECROLIMUS
  23. VENLAFAXINE [Concomitant]
     Active Substance: VENLAFAXINE HYDROCHLORIDE
  24. VITAMIN C [Concomitant]
     Active Substance: ASCORBIC ACID
  25. AMLODIPINE BESYLATE [Concomitant]
     Active Substance: AMLODIPINE BESYLATE
  26. BIOTIN [Concomitant]
     Active Substance: BIOTIN
  27. DOCUSATE SODIUM [Concomitant]
     Active Substance: DOCUSATE SODIUM
  28. FAMOTIDINE [Concomitant]
     Active Substance: FAMOTIDINE
  29. FUROSEMIDE [Concomitant]
     Active Substance: FUROSEMIDE
  30. GABAPENTIN [Concomitant]
     Active Substance: GABAPENTIN
  31. HYDRALAZINE [Concomitant]
     Active Substance: HYDRALAZINE HYDROCHLORIDE
  32. IRBESARTAN [Concomitant]
     Active Substance: IRBESARTAN
  33. LORATADINE [Concomitant]
     Active Substance: LORATADINE
  34. METOPROLOL SUCCINATE [Concomitant]
     Active Substance: METOPROLOL SUCCINATE
  35. MONTELUKAST [Concomitant]
     Active Substance: MONTELUKAST
  36. VITAMIN D NOS [Concomitant]
     Active Substance: CHOLECALCIFEROL\ERGOCALCIFEROL
  37. PREDNISONE [Concomitant]
     Active Substance: PREDNISONE
  38. APPLE CIDER [Concomitant]
  39. ZINC [Concomitant]
     Active Substance: ZINC
  40. ACETAMINOPHEN [Concomitant]
     Active Substance: ACETAMINOPHEN
  41. APPLE CIDER [Concomitant]
  42. AZELASTINE HYDROCHLORIDE [Concomitant]
     Active Substance: AZELASTINE HYDROCHLORIDE
  43. MAGNESIUM [Concomitant]
     Active Substance: MAGNESIUM
  44. VITAMINS NOS [Concomitant]
     Active Substance: VITAMINS
  45. NITROGLYCERIN [Concomitant]
     Active Substance: NITROGLYCERIN
  46. NYSTATIN [Concomitant]
     Active Substance: NYSTATIN
  47. TRESIBA [Concomitant]
     Active Substance: INSULIN DEGLUDEC
  48. DICLOFENAC [Concomitant]
     Active Substance: DICLOFENAC
  49. ALBUTEROL SULFATE [Concomitant]
     Active Substance: ALBUTEROL SULFATE
  50. FERROUS GLUCONATE [Concomitant]
     Active Substance: FERROUS GLUCONATE
  51. HYDROXYCHLOROQUINE [Concomitant]
     Active Substance: HYDROXYCHLOROQUINE
  52. OZEMPIC [Concomitant]
     Active Substance: SEMAGLUTIDE
  53. SODIUM CHLORIDE [Concomitant]
     Active Substance: SODIUM CHLORIDE
  54. STOOL SOFTENER (DOCUSATE) [Concomitant]
     Active Substance: DOCUSATE
  55. HYDROCODONE [Concomitant]
     Active Substance: HYDROCODONE
  56. PANTHENOL [Concomitant]
     Active Substance: PANTHENOL

REACTIONS (11)
  - Dermatitis [Not Recovered/Not Resolved]
  - Product dose omission issue [Unknown]
  - Drug ineffective [Not Recovered/Not Resolved]
  - Essential tremor [Not Recovered/Not Resolved]
  - Depression [Not Recovered/Not Resolved]
  - Weight increased [Not Recovered/Not Resolved]
  - Gait disturbance [Not Recovered/Not Resolved]
  - Skin injury [Not Recovered/Not Resolved]
  - Hyperphagia [Not Recovered/Not Resolved]
  - Restlessness [Not Recovered/Not Resolved]
  - Product use in unapproved indication [Unknown]
